FAERS Safety Report 9332935 (Version 1)
Quarter: 2013Q2

REPORT INFORMATION
  Report Type: Spontaneous
  Country: BR (occurrence: None)
  Receive Date: 20130603
  Receipt Date: 20130603
  Transmission Date: 20140414
  Serious: Yes (Hospitalization, Other)
  Sender: FDA-Public Use
  Company Number: DSJ-2013-12001

PATIENT
  Age: 51 Year
  Sex: Male
  Weight: 90 kg

DRUGS (3)
  1. BENICAR (OLMESARTAN MEDOXOMIL) (TABLET) (OLMESARTAN MEDOXOMIL) [Suspect]
     Indication: HYPERTENSION
     Dosage: 40 MG (40 MG, 1 IN 1 D), PER ORAL
     Route: 048
     Dates: end: 201305
  2. ACETYLSALICYLIC ACID (ACETYLSALICYLIC ACID) (ACETYLSALICYLIC ACID) [Concomitant]
  3. EZETIMIBE/SIMVASTATIN (SIMVASTATIN, EZETIMIBE) (SIMVASTATIN, EZETIMIBE) [Concomitant]

REACTIONS (2)
  - Drug ineffective [None]
  - Vascular graft [None]
